FAERS Safety Report 8289480-1 (Version None)
Quarter: 2012Q2

REPORT INFORMATION
  Report Type: 
  Country: None (occurrence: None)
  Receive Date: 20120417
  Receipt Date: 20120409
  Transmission Date: 20120825
  Serious: Yes (Other)
  Sender: FDA-Public Use
  Company Number: US-ASTELLAS-2012US003321

PATIENT

DRUGS (9)
  1. LANTUS [Concomitant]
     Indication: DIABETES MELLITUS
     Dosage: 80 U, UID/QD
     Route: 050
     Dates: start: 20090901
  2. ADVAIR DISKUS 100/50 [Concomitant]
     Indication: CHRONIC OBSTRUCTIVE PULMONARY DISEASE
     Dosage: 1 DF, BID
     Route: 065
     Dates: start: 20011001
  3. METOPROLOL TARTRATE [Concomitant]
     Indication: HYPERTENSION
     Dosage: 100 MG, UID/QD
     Route: 048
     Dates: start: 20011201
  4. HUMALOG [Concomitant]
     Indication: DIABETES MELLITUS
     Dosage: 20 U, QID
     Route: 050
     Dates: start: 20090901
  5. RIFAMPIN [Concomitant]
     Indication: PRURITUS
     Dosage: 150 MG, BID
     Route: 048
     Dates: start: 20110701
  6. UNSPECIFIED MEDICATION [Concomitant]
     Indication: PRURITUS
     Dosage: 50 MG, QID
     Route: 048
     Dates: start: 20011201
  7. PROGRAF [Suspect]
     Indication: LIVER TRANSPLANT
     Dosage: 6 MG, BID
     Route: 048
     Dates: start: 20070704
  8. TAMSULOSIN HCL [Concomitant]
     Indication: UROGENITAL DISORDER
     Dosage: 50 MG, UID/QD
     Route: 048
     Dates: start: 20111101
  9. PROAIR HFA [Concomitant]
     Indication: CHRONIC OBSTRUCTIVE PULMONARY DISEASE
     Dosage: UNK
     Route: 065
     Dates: start: 20011001

REACTIONS (1)
  - KNEE ARTHROPLASTY [None]
